FAERS Safety Report 7758878-X (Version None)
Quarter: 2011Q3

REPORT INFORMATION
  Report Type: 
  Country: None (occurrence: None)
  Receive Date: 20110915
  Receipt Date: 20110908
  Transmission Date: 20111222
  Serious: Yes (Other)
  Sender: FDA-Public Use
  Company Number: 1000022876

PATIENT
  Age: 68 Year
  Sex: Female

DRUGS (9)
  1. MUCINEX [Concomitant]
  2. DALIRESP [Suspect]
     Indication: BRONCHITIS CHRONIC
     Dosage: 500 MCG (500 MCG, 1 IN 1 D)ORAL
     Route: 048
     Dates: start: 20110629, end: 20110730
  3. DALIRESP [Suspect]
     Indication: CHRONIC OBSTRUCTIVE PULMONARY DISEASE
     Dosage: 500 MCG (500 MCG, 1 IN 1 D)ORAL
     Route: 048
     Dates: start: 20110629, end: 20110730
  4. DYAZIDE [Concomitant]
  5. FOSAMAX [Concomitant]
  6. COMBIVENT [Concomitant]
  7. SPIRIVA [Concomitant]
  8. SYMBICORT [Concomitant]
  9. XANAX [Concomitant]

REACTIONS (3)
  - NEUTROPENIA [None]
  - CONDITION AGGRAVATED [None]
  - CHRONIC OBSTRUCTIVE PULMONARY DISEASE [None]
